FAERS Safety Report 16472563 (Version 1)
Quarter: 2019Q2

REPORT INFORMATION
  Report Type: Spontaneous
  Country: BR (occurrence: BR)
  Receive Date: 20190625
  Receipt Date: 20190625
  Transmission Date: 20190711
  Serious: Yes (Other)
  Sender: FDA-Public Use
  Company Number: BR-BAXTER-2019BAX012233

PATIENT
  Age: 51 Year
  Sex: Female
  Weight: 86 kg

DRUGS (2)
  1. GENUXAL [Suspect]
     Active Substance: CYCLOPHOSPHAMIDE
     Indication: ACUTE BIPHENOTYPIC LEUKAEMIA
     Dosage: 4500 MG ONE PER DAY, IN 14 HOURS SEPARATION OF 180 ML IN 500 ML OF SODIUM CHLORIDE
     Route: 042
     Dates: start: 20190325
  2. CLORETO DE S?DIO - BAXTER [Suspect]
     Active Substance: SODIUM CHLORIDE
     Indication: MEDICATION DILUTION
     Dosage: GENUXAL 4500 MG ONE PER DAY, IN 14 HOURS SEPARATION OF 180 ML IN 500 ML OF SODIUM CHLORIDE
     Route: 042
     Dates: start: 20190325

REACTIONS (3)
  - Oral pain [Recovered/Resolved]
  - Rash [Recovered/Resolved]
  - Pruritus [Recovered/Resolved]

NARRATIVE: CASE EVENT DATE: 20190612
